FAERS Safety Report 8619256-4 (Version None)
Quarter: 2012Q3

REPORT INFORMATION
  Report Type: 
  Country: None (occurrence: None)
  Receive Date: 20120816
  Receipt Date: 20120816
  Transmission Date: 20120928
  Serious: Yes (Life-Threatening, Hospitalization)
  Sender: FDA-Public Use
  Company Number: None

PATIENT
  Age: 56 Year
  Sex: Male
  Weight: 107.3 kg

DRUGS (1)
  1. ESMOLOL HCL [Suspect]
     Dosage: 5 MG, ONCE, IV
     Route: 042
     Dates: start: 20120305, end: 20120305

REACTIONS (2)
  - ACUTE RESPIRATORY DISTRESS SYNDROME [None]
  - BRONCHOSPASM [None]
